FAERS Safety Report 9548954 (Version 1)
Quarter: 2013Q3

REPORT INFORMATION
  Report Type: Spontaneous
  Country: CN (occurrence: CN)
  Receive Date: 20130924
  Receipt Date: 20130924
  Transmission Date: 20140515
  Serious: Yes (Hospitalization)
  Sender: FDA-Public Use
  Company Number: PHHY2013CN104839

PATIENT
  Age: 45 Year
  Sex: Male

DRUGS (6)
  1. CLOZAPINE [Suspect]
     Indication: SCHIZOPHRENIA
     Dosage: UNK
  2. CLOZAPINE [Suspect]
     Dosage: 225 MG, PER DAY, FOR SEVERAL MONTHS
  3. CLOZAPINE [Suspect]
     Dosage: 275 MG/DAY
  4. CLOZAPINE [Suspect]
     Dosage: 350 MG PER DAY
  5. VALPROIC ACID [Suspect]
     Indication: SCHIZOPHRENIA
     Dosage: 400 MG PER DAY
  6. VALPROIC ACID [Suspect]
     Dosage: 600 MG PER DAY

REACTIONS (7)
  - Schizophrenia [Recovering/Resolving]
  - Apathy [Recovering/Resolving]
  - Soliloquy [Recovering/Resolving]
  - Delusion of grandeur [Recovering/Resolving]
  - Anosognosia [Recovering/Resolving]
  - Restlessness [Recovering/Resolving]
  - Insomnia [Recovering/Resolving]
